FAERS Safety Report 18658235 (Version 1)
Quarter: 2020Q4

REPORT INFORMATION
  Report Type: Spontaneous
  Country: US (occurrence: US)
  Receive Date: 20201224
  Receipt Date: 20201224
  Transmission Date: 20210114
  Serious: No
  Sender: FDA-Public Use
  Company Number: US-ALLERGAN-2044618US

PATIENT
  Age: 15 Year
  Sex: Female

DRUGS (2)
  1. ACZONE [Suspect]
     Active Substance: DAPSONE
     Indication: ACNE
     Dosage: ONCE DAILY
     Route: 061
     Dates: start: 20201110
  2. DOXYCYCLINE. [Concomitant]
     Active Substance: DOXYCYCLINE
     Indication: ACNE
     Dosage: HALF OF A 200MG TAB DAILY
     Route: 065

REACTIONS (4)
  - Inappropriate schedule of product administration [Unknown]
  - Application site irritation [Not Recovered/Not Resolved]
  - Application site discolouration [Unknown]
  - Application site erythema [Not Recovered/Not Resolved]

NARRATIVE: CASE EVENT DATE: 20201113
